FAERS Safety Report 20463114 (Version 1)
Quarter: 2022Q1

REPORT INFORMATION
  Report Type: Spontaneous
  Country: US (occurrence: US)
  Receive Date: 20220211
  Receipt Date: 20220211
  Transmission Date: 20220423
  Serious: No
  Sender: FDA-Public Use
  Company Number: US-PERRIGO-21US003703

PATIENT
  Age: 79 Year
  Sex: Male
  Weight: 70.295 kg

DRUGS (2)
  1. NAPROXEN SODIUM [Suspect]
     Active Substance: NAPROXEN SODIUM
     Indication: Pain
     Dosage: 440 MG, EVERY 12 HOURS
     Route: 048
     Dates: start: 20210210, end: 20210310
  2. NAPROXEN SODIUM [Suspect]
     Active Substance: NAPROXEN SODIUM
     Indication: Inflammation
     Dosage: 220 MG, EVERY 12 HOURS
     Route: 048
     Dates: start: 20210311

REACTIONS (2)
  - Incorrect product administration duration [Not Recovered/Not Resolved]
  - Incorrect dose administered [Recovered/Resolved]

NARRATIVE: CASE EVENT DATE: 20210210
